FAERS Safety Report 6997583-4 (Version None)
Quarter: 2010Q3

REPORT INFORMATION
  Report Type: 
  Country: None (occurrence: None)
  Receive Date: 20100918
  Receipt Date: 20091028
  Transmission Date: 20110219
  Serious: No
  Sender: FDA-Public Use
  Company Number: US-WYE-H11996009

PATIENT
  Sex: Female
  Weight: 45.4 kg

DRUGS (4)
  1. PRISTIQ [Suspect]
     Indication: DEPRESSION
     Route: 048
     Dates: start: 20080601, end: 20090101
  2. PRISTIQ [Suspect]
     Indication: ANXIETY
     Route: 048
     Dates: start: 20090101, end: 20090601
  3. LORAZEPAM [Concomitant]
  4. XANAX [Concomitant]

REACTIONS (2)
  - DECREASED APPETITE [None]
  - WEIGHT DECREASED [None]
